FAERS Safety Report 9215208 (Version 1)
Quarter: 2013Q2

REPORT INFORMATION
  Report Type: Spontaneous
  Country: GB (occurrence: GB)
  Receive Date: 20130405
  Receipt Date: 20130405
  Transmission Date: 20140414
  Serious: Yes (Other)
  Sender: FDA-Public Use
  Company Number: GB-MYLANLABS-2013S1006755

PATIENT
  Age: 78 Year
  Sex: Male
  Weight: 83 kg

DRUGS (7)
  1. PRAVASTATIN [Suspect]
     Indication: BLOOD CHOLESTEROL INCREASED
     Dates: start: 2005, end: 2008
  2. SIMVASTATIN [Suspect]
     Indication: BLOOD CHOLESTEROL INCREASED
     Dates: start: 2005, end: 2008
  3. ATORVASTATIN [Suspect]
     Indication: BLOOD CHOLESTEROL INCREASED
     Dates: start: 2005, end: 2008
  4. EZETIMIBE [Suspect]
     Indication: BLOOD CHOLESTEROL INCREASED
     Dates: start: 2005, end: 2008
  5. LIPITOR [Suspect]
     Indication: BLOOD CHOLESTEROL INCREASED
     Dates: start: 2005, end: 2008
  6. FENOFIBRATE [Suspect]
     Indication: BLOOD CHOLESTEROL INCREASED
     Dates: start: 2008, end: 2008
  7. ROSUVASTATIN [Suspect]
     Indication: BLOOD CHOLESTEROL INCREASED
     Dates: start: 2005, end: 2008

REACTIONS (7)
  - Constipation [Not Recovered/Not Resolved]
  - Fatigue [Not Recovered/Not Resolved]
  - Muscle fatigue [Not Recovered/Not Resolved]
  - Muscle atrophy [Not Recovered/Not Resolved]
  - Pain [Not Recovered/Not Resolved]
  - Sleep disorder [Not Recovered/Not Resolved]
  - Oedema mouth [Not Recovered/Not Resolved]
